FAERS Safety Report 8392368-9 (Version None)
Quarter: 2012Q2

REPORT INFORMATION
  Report Type: 
  Country: None (occurrence: None)
  Receive Date: 20120529
  Receipt Date: 20120514
  Transmission Date: 20120825
  Serious: Yes (Death, Other)
  Sender: FDA-Public Use
  Company Number: IT-ROCHE-58010

PATIENT
  Age: 8 Year
  Sex: Male

DRUGS (4)
  1. ROCEPHIN [Suspect]
     Indication: PRODUCT USED FOR UNKNOWN INDICATION
     Route: 042
     Dates: start: 19950401, end: 19950401
  2. ZIDOVUDINE [Concomitant]
  3. SULFAMETHOXAZOLE AND TRIMETHOPRIM [Concomitant]
     Indication: PROPHYLAXIS
  4. IMMUNE GLOBULIN NOS [Concomitant]
     Route: 042

REACTIONS (7)
  - HAEMOGLOBINURIA [None]
  - HAEMOGLOBIN DECREASED [None]
  - BACK PAIN [None]
  - BLOOD BILIRUBIN INCREASED [None]
  - HAEMOLYTIC ANAEMIA [None]
  - BLOOD CREATININE INCREASED [None]
  - HAEMOGLOBINAEMIA [None]
